FAERS Safety Report 5529363-0 (Version None)
Quarter: 2007Q4

REPORT INFORMATION
  Report Type: 
  Country: None (occurrence: None)
  Receive Date: 20071129
  Receipt Date: 20071126
  Transmission Date: 20080405
  Serious: Yes (Hospitalization)
  Sender: FDA-Public Use
  Company Number: A0695712A

PATIENT
  Sex: Female

DRUGS (3)
  1. PAROXETINE [Suspect]
     Indication: DEPRESSION
     Route: 048
  2. COPAXONE [Concomitant]
  3. ADAPIN [Concomitant]

REACTIONS (1)
  - DRUG INEFFECTIVE [None]
